FAERS Safety Report 8359708-8 (Version None)
Quarter: 2012Q2

REPORT INFORMATION
  Report Type: 
  Country: None (occurrence: None)
  Receive Date: 20120515
  Receipt Date: 20120504
  Transmission Date: 20120825
  Serious: Yes (Other)
  Sender: FDA-Public Use
  Company Number: DE-JNJFOC-20120507031

PATIENT
  Age: 59 Year
  Sex: Male

DRUGS (1)
  1. ZYTIGA [Suspect]
     Indication: PRODUCT USED FOR UNKNOWN INDICATION
     Route: 048

REACTIONS (5)
  - TREMOR [None]
  - CONVULSION [None]
  - HYPOKALAEMIA [None]
  - MUSCLE SPASMS [None]
  - PERIPHERAL COLDNESS [None]
